FAERS Safety Report 17276027 (Version 1)
Quarter: 2020Q1

REPORT INFORMATION
  Report Type: Spontaneous
  Country: BG (occurrence: BG)
  Receive Date: 20200116
  Receipt Date: 20200116
  Transmission Date: 20200409
  Serious: Yes (Hospitalization, Other)
  Sender: FDA-Public Use
  Company Number: BG-ROCHE-2517337

PATIENT
  Age: 62 Year
  Sex: Male

DRUGS (1)
  1. ROACTEMRA [Suspect]
     Active Substance: TOCILIZUMAB
     Indication: RHEUMATOID ARTHRITIS
     Route: 058
     Dates: end: 20191001

REACTIONS (9)
  - Flatulence [Recovered/Resolved]
  - Hydronephrosis [Recovered/Resolved]
  - Ileus [Recovered/Resolved]
  - Gastrointestinal oedema [Recovered/Resolved]
  - Mechanical ileus [Recovered/Resolved]
  - Cholelithiasis [Recovered/Resolved]
  - Urethral cancer [Recovered/Resolved]
  - Renal cancer [Recovered/Resolved]
  - Renal disorder [Recovered/Resolved]

NARRATIVE: CASE EVENT DATE: 201911
